FAERS Safety Report 8077889-0 (Version None)
Quarter: 2012Q1

REPORT INFORMATION
  Report Type: 
  Country: None (occurrence: None)
  Receive Date: 20120127
  Receipt Date: 20120118
  Transmission Date: 20120608
  Serious: Yes (Other)
  Sender: FDA-Public Use
  Company Number: CH-MERCK-1201USA02568

PATIENT
  Age: 40 Year
  Sex: Female
  Weight: 64 kg

DRUGS (10)
  1. EMEND [Suspect]
     Indication: VOMITING
     Route: 048
     Dates: start: 20111230
  2. DEXAMETHASONE SODIUM PHOSPHATE [Suspect]
     Indication: VOMITING
     Route: 042
     Dates: start: 20111230
  3. ZANTAC [Suspect]
     Route: 042
     Dates: start: 20111230
  4. EMEND [Suspect]
     Indication: NAUSEA
     Route: 048
     Dates: start: 20111230
  5. PACLITAXEL [Suspect]
     Indication: OVARIAN CANCER
     Route: 042
     Dates: start: 20111230
  6. DEXAMETHASONE SODIUM PHOSPHATE [Suspect]
     Indication: NAUSEA
     Route: 042
     Dates: start: 20111230
  7. CLEMASTINE FUMARATE [Suspect]
     Route: 042
     Dates: start: 20111230
  8. ONDANSETRON HCL [Suspect]
     Indication: VOMITING
     Route: 042
     Dates: start: 20111230
  9. CARBOPLATIN [Suspect]
     Indication: OVARIAN CANCER
     Route: 042
     Dates: start: 20111230, end: 20111230
  10. ONDANSETRON HCL [Suspect]
     Indication: NAUSEA
     Route: 042
     Dates: start: 20111230

REACTIONS (4)
  - MALAISE [None]
  - TYPE III IMMUNE COMPLEX MEDIATED REACTION [None]
  - DYSPNOEA [None]
  - NAUSEA [None]
